FAERS Safety Report 5154497-2 (Version None)
Quarter: 2006Q4

REPORT INFORMATION
  Report Type: 
  Country: None (occurrence: None)
  Receive Date: 20061114
  Receipt Date: 20061102
  Transmission Date: 20070319
  Serious: Yes (Hospitalization, Other)
  Sender: FDA-Public Use
  Company Number: FRWYE615102MAR04

PATIENT
  Age: 48 Year
  Sex: Male

DRUGS (9)
  1. RAPAMUNE [Suspect]
     Indication: PROPHYLAXIS AGAINST TRANSPLANT REJECTION
     Dosage: 4 MG DAILY AT THE TIME OF THE EVENT ONSET ORAL
     Route: 048
     Dates: start: 20030701
  2. CELLCEPT [Suspect]
     Indication: PROPHYLAXIS AGAINST TRANSPLANT REJECTION
     Dosage: 750 MG 2X PER 1 DAY ORAL
     Route: 048
     Dates: start: 20030702
  3. PREDNISONE [Suspect]
     Dosage: 8 MG DAILY AT THE TIME OF THE EVENT ONSET ORAL
     Route: 048
     Dates: start: 20030729, end: 20040101
  4. LOPRESSOR [Concomitant]
  5. RAMIPRIL [Concomitant]
  6. ONE-ALPHA (ALFACALCIDOL) [Concomitant]
  7. ATORVASTATIN CALCIUM [Concomitant]
  8. SPIRONOLACTONE [Concomitant]
  9. LEVOTHYROXINE SODIUM [Concomitant]

REACTIONS (5)
  - HAEMATOCRIT DECREASED [None]
  - HAEMOGLOBIN DECREASED [None]
  - HELICOBACTER GASTRITIS [None]
  - OESOPHAGITIS ULCERATIVE [None]
  - REFLUX OESOPHAGITIS [None]
